FAERS Safety Report 7931064-6 (Version None)
Quarter: 2011Q4

REPORT INFORMATION
  Report Type: 
  Country: None (occurrence: None)
  Receive Date: 20111121
  Receipt Date: 20111110
  Transmission Date: 20120403
  Serious: Yes (Hospitalization)
  Sender: FDA-Public Use
  Company Number: CA-BAXTER-2011BH035960

PATIENT
  Sex: Male
  Weight: 58 kg

DRUGS (4)
  1. EXTRANEAL [Suspect]
     Indication: PERITONEAL DIALYSIS
     Route: 033
  2. DIANEAL [Suspect]
     Indication: PERITONEAL DIALYSIS
     Route: 033
  3. DIANEAL [Suspect]
     Route: 033
  4. EXTRANEAL [Suspect]
     Route: 033

REACTIONS (2)
  - FLUID OVERLOAD [None]
  - WEIGHT INCREASED [None]
